FAERS Safety Report 9440803 (Version 4)
Quarter: 2013Q4

REPORT INFORMATION
  Report Type: Spontaneous
  Country: CN (occurrence: None)
  Receive Date: 20130801
  Receipt Date: 20131220
  Transmission Date: 20140711
  Serious: Yes (Death, Hospitalization)
  Sender: FDA-Public Use
  Company Number: SYM-2013-07079

PATIENT
  Age: 48 Year
  Sex: Female

DRUGS (13)
  1. 5 FU [Suspect]
     Indication: ADENOCARCINOMA
     Route: 040
     Dates: start: 20130520, end: 20130520
  2. AFLIBERCEPT [Suspect]
     Indication: ADENOCARCINOMA
     Route: 042
     Dates: start: 20130520, end: 20130520
  3. IRINOTECAN [Suspect]
     Indication: ADENOCARCINOMA
     Route: 042
     Dates: start: 20130520, end: 20130520
  4. LEUCOVORIN [Suspect]
     Indication: ADENOCARCINOMA
     Route: 042
     Dates: start: 20130520, end: 20130520
  5. PANTOPRAZOLE SODIUM (PRANTOPRAZOLE SODIUM SESQUIHYDRATE) [Concomitant]
  6. TROPISETRON (TROPISETRON) (TROPISETRON) [Concomitant]
  7. ORNITHINE ASPARTATE (ORNITHINE ASPARTATE) (ORNITHINE ASPARTATE) [Concomitant]
  8. VITAMIN B6 (PYRIDOXINE HYDROCHLORIDE) (PYRIDOXINE HYDROCHLORIDE) [Concomitant]
  9. METOCLOPRAMIDE (METOCLOPRAMIDE) (METOCLOPRAMIDE) [Concomitant]
  10. ATROPINE (ATROPINE) (ATROPINE) [Concomitant]
  11. CARBAZOCHROME SODIUM SULFONATE (CARBAZOCHROME SODIUM SULFONATE) 9CARBAZOCHROME SODIUM SULFONATE) [Concomitant]
  12. THROMBIN (THROMBIN) (THROMBIN) [Concomitant]
  13. FAT EMULSONS (FATS NOS) (FATS NOS) [Concomitant]

REACTIONS (7)
  - Death [None]
  - Haematochezia [None]
  - Circulatory collapse [None]
  - Respiratory failure [None]
  - Discomfort [None]
  - Hypokalaemia [None]
  - Hypoproteinaemia [None]
